FAERS Safety Report 8961143 (Version 1)
Quarter: 2012Q4

REPORT INFORMATION
  Report Type: 
  Country: CA (occurrence: CA)
  Receive Date: 20121212
  Receipt Date: 20121212
  Transmission Date: 20130627
  Serious: Yes (Death)
  Sender: FDA-Public Use
  Company Number: CA-GLAXOSMITHKLINE-A1004420A

PATIENT
  Age: 43 Year
  Sex: Male

DRUGS (4)
  1. VOTRIENT [Suspect]
     Indication: SARCOMA
     Dosage: 800MG Per day
     Route: 048
     Dates: start: 20121017
  2. PERCOCET [Concomitant]
  3. MORPHINE [Concomitant]
  4. RESTORIL [Concomitant]

REACTIONS (1)
  - Death [Fatal]
